FAERS Safety Report 5212131-7 (Version None)
Quarter: 2007Q1

REPORT INFORMATION
  Report Type: 
  Country: None (occurrence: None)
  Receive Date: 20070118
  Receipt Date: 20070111
  Transmission Date: 20070707
  Serious: Yes (Hospitalization)
  Sender: FDA-Public Use
  Company Number: GB-SANOFI-SYNTHELABO-F01200602425

PATIENT
  Sex: Female
  Weight: 90 kg

DRUGS (9)
  1. AMLODIPINE [Concomitant]
     Route: 048
     Dates: end: 20061121
  2. ORAMORPH SR [Concomitant]
     Route: 048
     Dates: start: 20061011
  3. FENTANYL TRANSDERMAL SYSTEM [Concomitant]
     Route: 050
     Dates: start: 20061011
  4. FOLINIC ACID [Suspect]
     Route: 041
     Dates: start: 20061117, end: 20061117
  5. CYCLIZINE [Concomitant]
     Route: 048
     Dates: end: 20061121
  6. CETUXIMAB [Suspect]
     Route: 041
     Dates: start: 20061117, end: 20061117
  7. BENDROFLUAZIDE [Concomitant]
     Route: 048
     Dates: end: 20061121
  8. FLUOROURACIL [Suspect]
     Dosage: 400 MG/M2 (800 MG) BOLUS FOLLOWED BY A 46 HOUR INFUSION OF 2400 MG/M2 (4800 MG)
     Route: 041
     Dates: start: 20061117, end: 20061118
  9. OXALIPLATIN [Suspect]
     Indication: COLORECTAL CANCER METASTATIC
     Route: 041
     Dates: start: 20061117, end: 20061117

REACTIONS (1)
  - CEREBROVASCULAR ACCIDENT [None]
